FAERS Safety Report 11029729 (Version 1)
Quarter: 2015Q2

REPORT INFORMATION
  Report Type: Spontaneous
  Country: GB (occurrence: GB)
  Receive Date: 20150415
  Receipt Date: 20150415
  Transmission Date: 20150821
  Serious: Yes (Life-Threatening, Hospitalization, Other)
  Sender: FDA-Public Use
  Company Number: GB-ACCORD-029902

PATIENT
  Age: 26 Year
  Sex: Female

DRUGS (19)
  1. TRYPTOPHAN/L- [Concomitant]
  2. DOCOSAHEXANOIC ACID/EICOSAPENTAENOIC ACID [Concomitant]
  3. ZOPICLONE [Concomitant]
     Active Substance: ZOPICLONE
  4. CHOLINE [Concomitant]
     Active Substance: CHOLINE
  5. DIAZEPAM. [Concomitant]
     Active Substance: DIAZEPAM
  6. BETAINE [Concomitant]
     Active Substance: BETAINE
  7. ERGOCALCIFEROL. [Concomitant]
     Active Substance: ERGOCALCIFEROL
  8. ZAPAIN [Concomitant]
     Active Substance: ACETAMINOPHEN\CODEINE PHOSPHATE
  9. HYOSCINE [Concomitant]
     Active Substance: SCOPOLAMINE
  10. FOLIC ACID. [Concomitant]
     Active Substance: FOLIC ACID
  11. LORAZEPAM. [Concomitant]
     Active Substance: LORAZEPAM
  12. CARNITINE/CARNITINE HYDROCHLORIDE [Concomitant]
  13. PREGABALIN. [Concomitant]
     Active Substance: PREGABALIN
  14. TRAMADOL [Concomitant]
     Active Substance: TRAMADOL
  15. IBUPROFEN. [Concomitant]
     Active Substance: IBUPROFEN
  16. SERTRALINE [Suspect]
     Active Substance: SERTRALINE HYDROCHLORIDE
     Indication: DEPRESSION
     Dosage: 50-200MG
     Route: 048
  17. BISACODYL. [Concomitant]
     Active Substance: BISACODYL
  18. PHOSPHATIDYL SERINE [Concomitant]
     Active Substance: PHOSPHATIDYL SERINE
  19. CALCIUM PANTOTHENATE/NICOTINAMIDE/PYRIDOXINE HYDROCHLORIDE/RIBOFLAVIN/THIAMINE HYDROCHLORIDE [Concomitant]

REACTIONS (5)
  - Hostility [Not Recovered/Not Resolved]
  - Personality change [Recovering/Resolving]
  - Tearfulness [Unknown]
  - Suicidal ideation [Not Recovered/Not Resolved]
  - Self injurious behaviour [Unknown]
